FAERS Safety Report 13285022 (Version 2)
Quarter: 2017Q2

REPORT INFORMATION
  Report Type: Spontaneous
  Country: ES (occurrence: ES)
  Receive Date: 20170301
  Receipt Date: 20170403
  Transmission Date: 20170830
  Serious: Yes (Hospitalization, Other)
  Sender: FDA-Public Use
  Company Number: ES-MYLANLABS-2017M1012169

PATIENT

DRUGS (8)
  1. FUROSEMIDA MYLAN 40 MG COMPRIMIDOS EFG [Suspect]
     Active Substance: FUROSEMIDE
     Indication: PRODUCT USED FOR UNKNOWN INDICATION
     Dosage: 40 MG, EVERY 12 HOURS
     Route: 048
     Dates: start: 201701
  2. CARVEDILOL. [Suspect]
     Active Substance: CARVEDILOL
     Indication: PRODUCT USED FOR UNKNOWN INDICATION
     Dosage: 6.25 MG, EVERY 12 HOURS
     Route: 048
  3. ZALDIAR [Concomitant]
     Active Substance: ACETAMINOPHEN\TRAMADOL HYDROCHLORIDE
     Indication: PRODUCT USED FOR UNKNOWN INDICATION
     Dosage: 1 DF, Q8H
     Route: 048
  4. CITALOPRAM [Concomitant]
     Active Substance: CITALOPRAM HYDROBROMIDE
     Indication: PRODUCT USED FOR UNKNOWN INDICATION
     Dosage: 20 MG, QD
     Route: 048
  5. TRINOMIA                           /06290201/ [Concomitant]
     Indication: PRODUCT USED FOR UNKNOWN INDICATION
     Dosage: 1 DF, QD
     Route: 048
  6. NOLOTIL                            /00473101/ [Concomitant]
     Active Substance: METAMIZOLE\PROPOXYPHENE
     Indication: PRODUCT USED FOR UNKNOWN INDICATION
     Dosage: 575 MG, Q8H
     Route: 048
  7. GENOXAL [Concomitant]
     Active Substance: CYCLOPHOSPHAMIDE
     Indication: PRODUCT USED FOR UNKNOWN INDICATION
     Dosage: 50 MG, QD
     Route: 048
  8. DOXAZOSIN NEO [Concomitant]
     Indication: PRODUCT USED FOR UNKNOWN INDICATION
     Dosage: 8 MG, Q8H
     Route: 048

REACTIONS (7)
  - Product substitution issue [Unknown]
  - Cardiopulmonary failure [Unknown]
  - Bronchitis [Unknown]
  - Abdominal distension [Unknown]
  - Drug ineffective [Unknown]
  - Nausea [Unknown]
  - Urine output decreased [Unknown]

NARRATIVE: CASE EVENT DATE: 2017
